FAERS Safety Report 4918298-X (Version None)
Quarter: 2006Q1

REPORT INFORMATION
  Report Type: 
  Country: None (occurrence: None)
  Receive Date: 20060215
  Receipt Date: 20060131
  Transmission Date: 20060701
  Serious: No
  Sender: FDA-Public Use
  Company Number: 2005S1010759

PATIENT
  Age: 77 Year
  Sex: Male
  Weight: 65.7716 kg

DRUGS (8)
  1. FENTANYL TRANSDERMAL SYSTEM [Suspect]
     Indication: PAIN
     Dosage: 50 UG/HR; Q3D;TRANS; 100 UG;HR;TRANS; 50 UG/HR;TRANS
     Route: 062
     Dates: end: 20050821
  2. FENTANYL TRANSDERMAL SYSTEM [Suspect]
     Indication: PAIN
     Dosage: 50 UG/HR; Q3D;TRANS; 100 UG;HR;TRANS; 50 UG/HR;TRANS
     Route: 062
     Dates: start: 20050818
  3. GABAPENTIN [Concomitant]
  4. SERTRALINE [Concomitant]
  5. LORAZEPAM [Concomitant]
  6. PROMETHAZINE [Concomitant]
  7. HYDROCHLORIDE [Concomitant]
  8. MORPHINE SULFATE [Concomitant]

REACTIONS (5)
  - HYPOTENSION [None]
  - INCORRECT DOSE ADMINISTERED [None]
  - LETHARGY [None]
  - SOMNOLENCE [None]
  - WRONG TECHNIQUE IN DRUG USAGE PROCESS [None]
